FAERS Safety Report 8124415-3 (Version None)
Quarter: 2012Q1

REPORT INFORMATION
  Report Type: 
  Country: None (occurrence: None)
  Receive Date: 20120209
  Receipt Date: 20120125
  Transmission Date: 20120608
  Serious: Yes (Death, Hospitalization, Other)
  Sender: FDA-Public Use
  Company Number: US-MUTUAL PHARMACEUTICAL COMPANY, INC.-CLHC20120007

PATIENT
  Age: 18 Year
  Sex: Male

DRUGS (1)
  1. COLCHICINE [Suspect]
     Route: 048
     Dates: start: 20100101, end: 20100101

REACTIONS (15)
  - NAUSEA [None]
  - HYPOTENSION [None]
  - CARDIOGENIC SHOCK [None]
  - BRAIN HERNIATION [None]
  - DYSURIA [None]
  - TOXICITY TO VARIOUS AGENTS [None]
  - HEART RATE INCREASED [None]
  - COMPARTMENT SYNDROME [None]
  - ELECTROLYTE IMBALANCE [None]
  - NERVOUS SYSTEM DISORDER [None]
  - DRUG ABUSE [None]
  - CARDIAC ARREST [None]
  - RESPIRATORY DISTRESS [None]
  - VOMITING [None]
  - HEPATORENAL FAILURE [None]
